FAERS Safety Report 7314539-2 (Version None)
Quarter: 2011Q1

REPORT INFORMATION
  Report Type: 
  Country: None (occurrence: None)
  Receive Date: 20110225
  Receipt Date: 20101101
  Transmission Date: 20110831
  Serious: No
  Sender: FDA-Public Use
  Company Number: US-MYLANLABS-2010S1017646

PATIENT
  Age: 24 Year
  Sex: Female
  Weight: 58.97 kg

DRUGS (2)
  1. AMNESTEEM [Suspect]
     Route: 048
     Dates: end: 20100823
  2. AMNESTEEM [Suspect]
     Indication: ACNE
     Route: 048
     Dates: start: 20100518, end: 20100823

REACTIONS (5)
  - DRY SKIN [None]
  - SKIN TIGHTNESS [None]
  - ERYTHEMA [None]
  - PRURITUS [None]
  - LYMPHADENOPATHY [None]
